FAERS Safety Report 7845148-4 (Version None)
Quarter: 2011Q4

REPORT INFORMATION
  Report Type: 
  Country: None (occurrence: None)
  Receive Date: 20111025
  Receipt Date: 20111018
  Transmission Date: 20120403
  Serious: Yes (Other)
  Sender: FDA-Public Use
  Company Number: CHPA2011US14457

PATIENT
  Age: 64 Year
  Sex: Female

DRUGS (1)
  1. THERAPEUTIC MINERAL ICE [Suspect]
     Indication: MUSCLE STRAIN
     Dosage: UNK, QD
     Route: 061
     Dates: start: 20111001, end: 20111014

REACTIONS (4)
  - SKIN SWELLING [None]
  - EXPIRED DRUG ADMINISTERED [None]
  - BLISTER [None]
  - BURNS SECOND DEGREE [None]
